FAERS Safety Report 21769857 (Version 1)
Quarter: 2022Q4

REPORT INFORMATION
  Report Type: Spontaneous
  Country: FR (occurrence: FR)
  Receive Date: 20221223
  Receipt Date: 20221223
  Transmission Date: 20230113
  Serious: Yes (Death, Other)
  Sender: FDA-Public Use
  Company Number: FR-BAXTER-2022BAX026235

PATIENT
  Age: 48 Year
  Sex: Male

DRUGS (3)
  1. BORTEZOMIB [Suspect]
     Active Substance: BORTEZOMIB
     Indication: Product used for unknown indication
     Dosage: 2.5 MILLIGRAM(1 DOSE(S)/WEEK 4 WEEK(S)/CYCLE, TREATMENT LINE NUMBER 4, TREATMENT DURATION: 1.4 MONTH
     Route: 065
     Dates: end: 20211108
  2. CYCLOPHOSPHAMIDE [Suspect]
     Active Substance: CYCLOPHOSPHAMIDE
     Indication: Product used for unknown indication
     Dosage: 300 MILLIGRAM(1 DOSE(S)/WEEK 4 WEEK(S)/CYCLE, TREATMENT LINE NUMBER 4, TREATMENT DURATION: 1.4 MONTH
     Route: 065
     Dates: end: 20211108
  3. DEXAMETHASONE [Suspect]
     Active Substance: DEXAMETHASONE
     Indication: Product used for unknown indication
     Dosage: 20 MILLIGRAM(2 DOSE(S)/WEEK 4 WEEK(S)/CYCLE, TREATMENT LINE NUMBER 4, TREATMENT DURATION: 1.4 MONTHS
     Route: 065
     Dates: end: 20211108

REACTIONS (1)
  - Disease progression [Fatal]
